FAERS Safety Report 6371021-7 (Version None)
Quarter: 2009Q3

REPORT INFORMATION
  Report Type: 
  Country: None (occurrence: None)
  Receive Date: 20090923
  Receipt Date: 20090911
  Transmission Date: 20100115
  Serious: Yes (Other)
  Sender: FDA-Public Use
  Company Number: JP-PFIZER INC-2009251185

PATIENT
  Age: 50 Year

DRUGS (9)
  1. ZITHROMAC SR [Suspect]
     Indication: ACUTE TONSILLITIS
     Route: 048
     Dates: start: 20090701, end: 20090701
  2. ZITHROMAC SR [Suspect]
     Indication: PHARYNGITIS BACTERIAL
  3. DALACIN-S [Concomitant]
     Indication: BRONCHITIS
     Dosage: UNK
     Route: 042
     Dates: start: 20090701, end: 20090701
  4. MIYARI BACTERIA [Concomitant]
     Dosage: UNK
     Dates: start: 20090701
  5. HERBAL PREPARATION [Concomitant]
     Dosage: UNK
     Route: 048
     Dates: start: 20090701, end: 20090703
  6. MAOTO [Concomitant]
     Dosage: UNK
     Route: 048
     Dates: start: 20090701, end: 20090703
  7. MUCODYNE [Concomitant]
     Dosage: UNK
     Route: 048
     Dates: start: 20090701, end: 20090703
  8. CALONAL [Concomitant]
     Dosage: UNK
     Route: 048
     Dates: start: 20090701, end: 20090703
  9. FLADD [Concomitant]
     Dosage: UNK
     Route: 042
     Dates: start: 20090701, end: 20090703

REACTIONS (3)
  - BLAST CELL CRISIS [None]
  - DIARRHOEA [None]
  - HEPATIC FUNCTION ABNORMAL [None]
